FAERS Safety Report 15104269 (Version 1)
Quarter: 2018Q3

REPORT INFORMATION
  Report Type: Report from Study
  Country: FR (occurrence: FR)
  Receive Date: 20180703
  Receipt Date: 20180703
  Transmission Date: 20181010
  Serious: Yes (Other)
  Sender: FDA-Public Use
  Company Number: FR-PFIZER INC-2018263640

PATIENT
  Age: 61 Year
  Sex: Male

DRUGS (9)
  1. FLUOROURACIL. [Suspect]
     Active Substance: FLUOROURACIL
     Dosage: 4550 MG, DAILY, CYCLIC
     Route: 041
     Dates: start: 20150608, end: 20150608
  2. CALCIUM FOLINATE [Suspect]
     Active Substance: LEUCOVORIN CALCIUM
     Dosage: 400 MG, DAILY, CYCLIC
     Route: 041
     Dates: start: 20150413, end: 20150413
  3. IRINOTECAN HCL [Suspect]
     Active Substance: IRINOTECAN HYDROCHLORIDE
     Dosage: 300 MG, DAILY, CYCLIC
     Route: 041
     Dates: start: 20150413, end: 20150413
  4. FLUOROURACIL. [Suspect]
     Active Substance: FLUOROURACIL
     Dosage: 4600 MG, UNK
     Route: 041
     Dates: start: 20150413, end: 20150413
  5. FLUOROURACIL. [Suspect]
     Active Substance: FLUOROURACIL
     Indication: COLORECTAL CANCER METASTATIC
     Dosage: 800 MG, DAILY, CYCLIC
     Route: 040
     Dates: start: 20150608, end: 20150608
  6. FLUOROURACIL. [Suspect]
     Active Substance: FLUOROURACIL
     Dosage: 800 MG, DAILY, CYCLIC
     Route: 040
     Dates: start: 20150413, end: 20150413
  7. AFLIBERCEPT [Suspect]
     Active Substance: AFLIBERCEPT
     Indication: COLORECTAL CANCER METASTATIC
     Dosage: 325 MG, DAILY, CYCLIC
     Route: 041
     Dates: start: 20150413, end: 20150413
  8. CALCIUM FOLINATE [Suspect]
     Active Substance: LEUCOVORIN CALCIUM
     Indication: COLORECTAL CANCER METASTATIC
     Dosage: 390 MG, DAILY, CYCLIC
     Route: 041
     Dates: start: 20150608, end: 20150608
  9. IRINOTECAN HCL [Suspect]
     Active Substance: IRINOTECAN HYDROCHLORIDE
     Indication: COLORECTAL CANCER METASTATIC
     Dosage: 300 MG, DAILY, CYCLIC
     Route: 041
     Dates: start: 20150608, end: 20150608

REACTIONS (2)
  - Diarrhoea [Recovered/Resolved]
  - Neuropathy peripheral [Not Recovered/Not Resolved]

NARRATIVE: CASE EVENT DATE: 201506
